FAERS Safety Report 4647531-7 (Version None)
Quarter: 2005Q2

REPORT INFORMATION
  Report Type: 
  Country: None (occurrence: None)
  Receive Date: 20050427
  Receipt Date: 20050427
  Transmission Date: 20051028
  Serious: Yes (Hospitalization)
  Sender: FDA-Public Use
  Company Number: None

PATIENT
  Sex: Female

DRUGS (4)
  1. RITUXAN [Suspect]
     Indication: B-CELL SMALL LYMPHOCYTIC LYMPHOMA
     Dosage: 375 MG/M2
     Dates: end: 20050323
  2. PENTOSTATIN [Suspect]
     Indication: B-CELL SMALL LYMPHOCYTIC LYMPHOMA
     Dosage: 4MG/M2
     Dates: end: 20050323
  3. CYTOXAN [Suspect]
     Indication: B-CELL SMALL LYMPHOCYTIC LYMPHOMA
     Dosage: 600MG/M2
     Dates: end: 20050323
  4. CHEMOTHERAPY [Concomitant]

REACTIONS (2)
  - PNEUMONIA [None]
  - SINUS TACHYCARDIA [None]
